FAERS Safety Report 23096341 (Version 1)
Quarter: 2023Q4

REPORT INFORMATION
  Report Type: Spontaneous
  Country: GB (occurrence: GB)
  Receive Date: 20231023
  Receipt Date: 20231023
  Transmission Date: 20240109
  Serious: Yes (Death)
  Sender: FDA-Public Use
  Company Number: GB-HBP-2023GB029933

PATIENT
  Age: 63 Year
  Sex: Male

DRUGS (1)
  1. MECHLORETHAMINE HYDROCHLORIDE [Suspect]
     Active Substance: MECHLORETHAMINE HYDROCHLORIDE
     Indication: Cutaneous T-cell lymphoma
     Dosage: AS DIRECTED
     Route: 061
     Dates: start: 202305, end: 2023

REACTIONS (1)
  - Death [Fatal]

NARRATIVE: CASE EVENT DATE: 20230827
